FAERS Safety Report 14101571 (Version 1)
Quarter: 2017Q4

REPORT INFORMATION
  Report Type: Spontaneous
  Country: US (occurrence: US)
  Receive Date: 20171018
  Receipt Date: 20171018
  Transmission Date: 20180321
  Serious: Yes (Hospitalization)
  Sender: FDA-Public Use
  Company Number: US-SHIRE-US201720739

PATIENT

DRUGS (1)
  1. PENTASA [Suspect]
     Active Substance: MESALAMINE
     Indication: COLITIS ULCERATIVE
     Dosage: 1600 MG, 2X/DAY:BID
     Route: 065

REACTIONS (1)
  - Pulmonary eosinophilia [Recovered/Resolved]
